FAERS Safety Report 4929234-4 (Version None)
Quarter: 2006Q1

REPORT INFORMATION
  Report Type: 
  Country: None (occurrence: None)
  Receive Date: 20060223
  Receipt Date: 20060214
  Transmission Date: 20060701
  Serious: Yes (Hospitalization)
  Sender: FDA-Public Use
  Company Number: 2005BI021527

PATIENT
  Age: 46 Year
  Sex: Female
  Weight: 79.3795 kg

DRUGS (4)
  1. AVONEX [Suspect]
     Indication: MULTIPLE SCLEROSIS
     Dosage: 30 UG; QW; IM
     Route: 030
     Dates: start: 20030901
  2. ACCUPRIL [Concomitant]
  3. TERAZOSIN [Concomitant]
  4. BISOPROLOL [Concomitant]

REACTIONS (4)
  - ANAEMIA [None]
  - MENORRHAGIA [None]
  - MULTIPLE SCLEROSIS [None]
  - UTERINE LEIOMYOMA [None]
